FAERS Safety Report 4475321-7 (Version None)
Quarter: 2004Q4

REPORT INFORMATION
  Report Type: 
  Country: None (occurrence: None)
  Receive Date: 20041015
  Receipt Date: 20041001
  Transmission Date: 20050328
  Serious: Yes (Life-Threatening, Hospitalization)
  Sender: FDA-Public Use
  Company Number: 200417608US

PATIENT
  Sex: Female
  Weight: 113.6 kg

DRUGS (1)
  1. LANTUS [Suspect]

REACTIONS (4)
  - DYSPNOEA [None]
  - OEDEMA PERIPHERAL [None]
  - POLYDIPSIA [None]
  - TREATMENT NONCOMPLIANCE [None]
